FAERS Safety Report 6159539-3 (Version None)
Quarter: 2009Q2

REPORT INFORMATION
  Report Type: 
  Country: None (occurrence: None)
  Receive Date: 20090420
  Receipt Date: 20090413
  Transmission Date: 20091009
  Serious: No
  Sender: FDA-Public Use
  Company Number: US-JNJFOC-20090403317

PATIENT
  Sex: Female
  Weight: 56.7 kg

DRUGS (9)
  1. FENTANYL TRANSDERMAL SYSTEM [Suspect]
     Indication: INTERVERTEBRAL DISC PROTRUSION
     Route: 062
  2. NEURONTIN [Suspect]
     Route: 048
  3. NEURONTIN [Suspect]
     Indication: NEURALGIA
     Route: 048
  4. HYDROCODONE BITARTRATE [Concomitant]
     Indication: PAIN
     Dosage: 10/325MG ONCE EVERY 6 HOURS
     Route: 048
  5. CARBAMAZEPINE [Concomitant]
     Indication: NEURALGIA
     Route: 048
  6. OMEPRAZOLE [Concomitant]
     Indication: GASTROOESOPHAGEAL REFLUX DISEASE
     Route: 048
  7. GABAPENTIN [Concomitant]
     Indication: NEURALGIA
     Route: 048
  8. PHENOBARB [Concomitant]
     Indication: PETIT MAL EPILEPSY
     Dosage: 2 AT BED TIME
     Route: 048
  9. LORAZEPAM [Concomitant]
     Indication: NERVOUSNESS
     Route: 048

REACTIONS (3)
  - APPLICATION SITE ERYTHEMA [None]
  - SPEECH DISORDER [None]
  - WRONG TECHNIQUE IN DRUG USAGE PROCESS [None]
